FAERS Safety Report 17564025 (Version 1)
Quarter: 2020Q1

REPORT INFORMATION
  Report Type: Spontaneous
  Country: US (occurrence: US)
  Receive Date: 20200320
  Receipt Date: 20200320
  Transmission Date: 20200409
  Serious: No
  Sender: FDA-Public Use
  Company Number: NVSC2020US079906

PATIENT

DRUGS (1)
  1. CERITINIB [Suspect]
     Active Substance: CERITINIB
     Indication: METASTASES TO CENTRAL NERVOUS SYSTEM
     Dosage: 750 MG, QD
     Route: 048

REACTIONS (2)
  - Drug level below therapeutic [Unknown]
  - Product use in unapproved indication [Unknown]
